FAERS Safety Report 18233255 (Version 1)
Quarter: 2020Q3

REPORT INFORMATION
  Report Type: Spontaneous
  Country: US (occurrence: US)
  Receive Date: 20200904
  Receipt Date: 20200904
  Transmission Date: 20201103
  Serious: Yes (Other)
  Sender: FDA-Public Use
  Company Number: US-OSMOTICA_PHARMACEUTICAL_US_LLC-POI0573202000398

PATIENT
  Age: 72 Year
  Sex: Male

DRUGS (3)
  1. OSMOLEX ER [Suspect]
     Active Substance: AMANTADINE
     Dosage: QOD
     Dates: start: 20200312
  2. OSMOLEX ER [Suspect]
     Active Substance: AMANTADINE
     Dates: start: 202002, end: 20200311
  3. OSMOLEX ER [Suspect]
     Active Substance: AMANTADINE
     Indication: PARKINSON^S DISEASE
     Dates: start: 20200114, end: 202002

REACTIONS (2)
  - Fall [Recovered/Resolved]
  - Hallucination [Recovered/Resolved]

NARRATIVE: CASE EVENT DATE: 202003
